FAERS Safety Report 4577654-2 (Version None)
Quarter: 2005Q1

REPORT INFORMATION
  Report Type: 
  Country: None (occurrence: None)
  Receive Date: 20050210
  Receipt Date: 20041123
  Transmission Date: 20050727
  Serious: Yes (Other)
  Sender: FDA-Public Use
  Company Number: US-MERCK-0411USA03935

PATIENT

DRUGS (1)
  1. VIOXX [Suspect]
     Route: 065
     Dates: start: 20000201, end: 20011201

REACTIONS (2)
  - ADVERSE EVENT [None]
  - CORONARY ARTERY DISEASE [None]
